FAERS Safety Report 8261616-8 (Version None)
Quarter: 2012Q2

REPORT INFORMATION
  Report Type: 
  Country: None (occurrence: None)
  Receive Date: 20120405
  Receipt Date: 20120326
  Transmission Date: 20120825
  Serious: Yes (Other)
  Sender: FDA-Public Use
  Company Number: DK-CELGENEUS-044-C5013-11110006

PATIENT
  Sex: Male

DRUGS (17)
  1. LENALIDOMIDE [Suspect]
     Route: 048
     Dates: start: 20091019, end: 20100615
  2. ALKERAN [Suspect]
     Indication: MULTIPLE MYELOMA
     Route: 065
     Dates: start: 20071109, end: 20080314
  3. LENALIDOMIDE [Suspect]
     Indication: MULTIPLE MYELOMA
     Route: 048
     Dates: start: 20071109, end: 20080314
  4. CYCLOPHOSPHAMIDE [Suspect]
     Route: 065
     Dates: start: 20091019, end: 20100615
  5. INSULIN [Concomitant]
     Route: 065
     Dates: start: 20111031
  6. DEXAMETHASONE [Suspect]
     Indication: MULTIPLE MYELOMA
     Route: 065
     Dates: start: 20080421, end: 20080808
  7. SIMVASTATIN [Concomitant]
     Route: 065
  8. LENALIDOMIDE [Suspect]
     Route: 048
     Dates: start: 20101022, end: 20110527
  9. PREDNISONE TAB [Suspect]
     Indication: MULTIPLE MYELOMA
     Route: 065
     Dates: start: 20071109, end: 20080314
  10. DOXORUBICIN HCL [Suspect]
     Indication: MULTIPLE MYELOMA
     Route: 065
     Dates: start: 20080421, end: 20080808
  11. CYCLOPHOSPHAMIDE [Suspect]
     Indication: MULTIPLE MYELOMA
     Route: 065
     Dates: start: 20080421, end: 20080808
  12. METFORMIN HCL [Concomitant]
     Route: 065
     Dates: end: 20111031
  13. DEXAMETHASONE [Suspect]
     Route: 065
     Dates: start: 20091019, end: 20100615
  14. DEXAMETHASONE [Suspect]
     Route: 065
     Dates: start: 20101022, end: 20110527
  15. DOXORUBICIN HCL [Suspect]
     Route: 065
     Dates: start: 20091019, end: 20100615
  16. BORTEZOMIB [Suspect]
     Route: 065
     Dates: start: 20091019, end: 20100615
  17. BORTEZOMIB [Suspect]
     Indication: MULTIPLE MYELOMA
     Route: 065
     Dates: start: 20080421, end: 20080808

REACTIONS (4)
  - MARROW HYPERPLASIA [None]
  - MYELOMA RECURRENCE [None]
  - NEPHROPATHY [None]
  - SQUAMOUS CELL CARCINOMA OF SKIN [None]
